FAERS Safety Report 5783073-3 (Version None)
Quarter: 2008Q2

REPORT INFORMATION
  Report Type: 
  Country: None (occurrence: None)
  Receive Date: 20080624
  Receipt Date: 20080619
  Transmission Date: 20081010
  Serious: Yes (Death, Hospitalization)
  Sender: FDA-Public Use
  Company Number: US-ASTRAZENECA-2007UW00341

PATIENT
  Age: 87 Year
  Sex: Female

DRUGS (2)
  1. SEROQUEL [Suspect]
     Indication: HYPOTHYROIDISM
     Route: 048
     Dates: start: 20050214, end: 20050308
  2. FLUCONAZOLE [Concomitant]
     Route: 048

REACTIONS (8)
  - ACUTE RIGHT VENTRICULAR FAILURE [None]
  - HEPATIC NECROSIS [None]
  - MITRAL VALVE DISEASE [None]
  - PNEUMONIA [None]
  - PULMONARY HAEMORRHAGE [None]
  - PULMONARY OEDEMA [None]
  - RENAL FAILURE ACUTE [None]
  - SEPTIC SHOCK [None]
